FAERS Safety Report 8820563 (Version 1)
Quarter: 2012Q4

REPORT INFORMATION
  Report Type: 
  Country: AT (occurrence: AT)
  Receive Date: 20121002
  Receipt Date: 20121002
  Transmission Date: 20130627
  Serious: Yes (Death)
  Sender: FDA-Public Use
  Company Number: AT-ACTELION-A-CH2012-71909

PATIENT
  Age: 75 Year
  Sex: Female
  Weight: 138 kg

DRUGS (11)
  1. TRACLEER [Suspect]
     Indication: PULMONARY ARTERIAL HYPERTENSION
     Dosage: 125 mg, UNK
     Route: 048
  2. NEXIUM [Concomitant]
     Dosage: UNK
     Dates: start: 20120101
  3. SIMVASTATIN [Concomitant]
     Dosage: UNK
     Dates: start: 20120101
  4. HYGROTON [Concomitant]
  5. HYPREN [Concomitant]
  6. CONCOR [Concomitant]
  7. AERIUS [Concomitant]
  8. SYMBICOCT [Concomitant]
  9. LASIX [Concomitant]
  10. SINTROM [Concomitant]
  11. THYREX [Concomitant]

REACTIONS (4)
  - Sepsis [Fatal]
  - Renal failure acute [Fatal]
  - Haemodialysis [Fatal]
  - Atelectasis [Fatal]
